FAERS Safety Report 6427170-8 (Version None)
Quarter: 2009Q4

REPORT INFORMATION
  Report Type: 
  Country: None (occurrence: None)
  Receive Date: 20091028
  Receipt Date: 20091001
  Transmission Date: 20100525
  Serious: Yes (Hospitalization)
  Sender: FDA-Public Use
  Company Number: WAES 0910USA00126

PATIENT
  Age: 72 Year
  Sex: Male
  Weight: 71.6683 kg

DRUGS (3)
  1. DECADRON [Suspect]
     Dosage: PO
     Route: 048
  2. BLINDED THERAPY UNK [Suspect]
     Indication: PROPHYLAXIS
     Dosage: PO
     Route: 048
     Dates: start: 20090827, end: 20090914
  3. THERAPEUTIC RADIOPHARMACEUTICAL (UNSPECIFIED) UNK [Suspect]
     Dates: start: 20090826

REACTIONS (10)
  - ACUTE MYOCARDIAL INFARCTION [None]
  - ASTHENIA [None]
  - ATRIAL FLUTTER [None]
  - BLOOD UREA INCREASED [None]
  - CONFUSIONAL STATE [None]
  - HYPERGLYCAEMIA [None]
  - HYPOTENSION [None]
  - METASTASES TO CENTRAL NERVOUS SYSTEM [None]
  - MUSCULAR WEAKNESS [None]
  - TACHYCARDIA [None]
